FAERS Safety Report 5274553-8 (Version None)
Quarter: 2007Q1

REPORT INFORMATION
  Report Type: 
  Country: None (occurrence: None)
  Receive Date: 20070323
  Receipt Date: 20070313
  Transmission Date: 20070707
  Serious: Yes (Hospitalization, Other)
  Sender: FDA-Public Use
  Company Number: GB-PFIZER INC-2007020389

PATIENT
  Sex: Female

DRUGS (2)
  1. SULFASALAZINE [Suspect]
  2. PENICILLAMINE [Suspect]

REACTIONS (2)
  - DERMATITIS INFECTED [None]
  - HYPERSENSITIVITY [None]
